FAERS Safety Report 6613790-4 (Version None)
Quarter: 2010Q1

REPORT INFORMATION
  Report Type: 
  Country: None (occurrence: None)
  Receive Date: 20100226
  Receipt Date: 20100216
  Transmission Date: 20100710
  Serious: Yes (Hospitalization, Other)
  Sender: FDA-Public Use
  Company Number: 2009-190782-NL

PATIENT
  Age: 26 Year
  Sex: Female
  Weight: 120.2032 kg

DRUGS (3)
  1. NUVARING [Suspect]
     Indication: DRUG USE FOR UNKNOWN INDICATION
     Dates: start: 20061201, end: 20070201
  2. ACETAMINOPHEN (CON.) [Concomitant]
  3. IBUPROFEN (CON.) [Concomitant]

REACTIONS (15)
  - BLOOD FIBRINOGEN INCREASED [None]
  - DRUG EXPOSURE DURING PREGNANCY [None]
  - HYPOTHYROIDISM [None]
  - INITIAL INSOMNIA [None]
  - INTERNATIONAL NORMALISED RATIO DECREASED [None]
  - MENORRHAGIA [None]
  - OEDEMA PERIPHERAL [None]
  - PERIODIC LIMB MOVEMENT DISORDER [None]
  - POOR QUALITY SLEEP [None]
  - PREGNANCY [None]
  - PROTHROMBIN TIME PROLONGED [None]
  - PULMONARY EMBOLISM [None]
  - SNORING [None]
  - SOMNOLENCE [None]
  - TACHYCARDIA [None]
